FAERS Safety Report 8262609 (Version 3)
Quarter: 2013Q4

REPORT INFORMATION
  Report Type: Spontaneous
  Country: CA (occurrence: CA)
  Receive Date: 20111124
  Receipt Date: 20131231
  Transmission Date: 20140711
  Serious: Yes (Other)
  Sender: FDA-Public Use
  Company Number: CA-RANBAXY-2011US-50546

PATIENT
  Age: 51 Year
  Sex: Male

DRUGS (3)
  1. RISPERIDONE [Suspect]
     Indication: AGITATED DEPRESSION
     Dosage: UNK
     Route: 065
  2. PAROXETINE [Concomitant]
     Indication: PRODUCT USED FOR UNKNOWN INDICATION
     Dosage: UNK
     Route: 065
  3. WARFARIN [Concomitant]
     Indication: PRODUCT USED FOR UNKNOWN INDICATION
     Dosage: UNK,UNK
     Route: 065

REACTIONS (7)
  - Agitation [Recovering/Resolving]
  - Suicidal ideation [Unknown]
  - Insomnia [Unknown]
  - Decreased appetite [Unknown]
  - Depressive symptom [Recovering/Resolving]
  - Tardive dyskinesia [Recovering/Resolving]
  - Divorced [Unknown]
